FAERS Safety Report 11167503 (Version 1)
Quarter: 2015Q2

REPORT INFORMATION
  Report Type: Spontaneous
  Country: US (occurrence: US)
  Receive Date: 20150605
  Receipt Date: 20150605
  Transmission Date: 20150821
  Serious: Yes (Other)
  Sender: FDA-Public Use
  Company Number: US-PFIZER INC-2015185642

PATIENT
  Age: 53 Year
  Sex: Female
  Weight: 115.65 kg

DRUGS (2)
  1. GABAPENTIN. [Suspect]
     Active Substance: GABAPENTIN
     Indication: FIBROMYALGIA
     Dosage: UNK, 1X/DAY
  2. NEURONTIN [Suspect]
     Active Substance: GABAPENTIN
     Indication: FIBROMYALGIA
     Dosage: UNK, 1X/DAY

REACTIONS (10)
  - Muscle rupture [Unknown]
  - Tendon rupture [Unknown]
  - Swelling [Unknown]
  - Rotator cuff syndrome [Unknown]
  - Peripheral swelling [Unknown]
  - Fall [Unknown]
  - Skin exfoliation [Unknown]
  - Drug intolerance [Unknown]
  - Drug withdrawal syndrome [Unknown]
  - Ligament rupture [Unknown]
